FAERS Safety Report 15549757 (Version 1)
Quarter: 2018Q4

REPORT INFORMATION
  Report Type: Spontaneous
  Country: US (occurrence: US)
  Receive Date: 20181018
  Receipt Date: 20181018
  Transmission Date: 20190205
  Serious: No
  Sender: FDA-Public Use
  Company Number: None

PATIENT
  Age: 45 Year
  Sex: Male
  Weight: 179.17 kg

DRUGS (1)
  1. BUPRENOPHINE/NALOXONE 8/2MG [Suspect]
     Active Substance: BUPRENORPHINE\NALOXONE
     Indication: DRUG DEPENDENCE
     Route: 058
     Dates: start: 20180515

REACTIONS (2)
  - Urine output increased [None]
  - Muscle spasms [None]
